FAERS Safety Report 21273968 (Version 2)
Quarter: 2022Q4

REPORT INFORMATION
  Report Type: Spontaneous
  Country: JP (occurrence: JP)
  Receive Date: 20220831
  Receipt Date: 20221014
  Transmission Date: 20230113
  Serious: Yes (Death, Other)
  Sender: FDA-Public Use
  Company Number: JP-PFIZER INC-PV202200051321

PATIENT
  Age: 77 Year
  Sex: Male

DRUGS (4)
  1. PAXLOVID [Suspect]
     Active Substance: NIRMATRELVIR\RITONAVIR
     Indication: COVID-19 treatment
     Dosage: 800 MG, DAILY
     Route: 048
     Dates: start: 20220829
  2. CALONAL [Concomitant]
     Active Substance: ACETAMINOPHEN
     Dosage: 1200 MG, DAILY
     Route: 048
  3. CARBOCYSTEINE [Concomitant]
     Active Substance: CARBOCYSTEINE
     Dosage: UNK
     Route: 048
  4. DEXTROMETHORPHAN HYDROBROMIDE [Concomitant]
     Active Substance: DEXTROMETHORPHAN HYDROBROMIDE
     Dosage: UNK
     Route: 048

REACTIONS (3)
  - Gastrointestinal necrosis [Fatal]
  - Vomiting [Fatal]
  - Vasospasm [Fatal]

NARRATIVE: CASE EVENT DATE: 20220829
